FAERS Safety Report 8837207 (Version 1)
Quarter: 2012Q4

REPORT INFORMATION
  Report Type: 
  Country: US (occurrence: US)
  Receive Date: 20121011
  Receipt Date: 20121011
  Transmission Date: 20130627
  Serious: Yes (Death, Hospitalization)
  Sender: FDA-Public Use
  Company Number: US-ROCHE-1125525

PATIENT
  Sex: Female
  Weight: 5.8 kg

DRUGS (4)
  1. NUTROPIN [Suspect]
     Indication: RENAL FAILURE CHRONIC
     Dosage: 0.15 ml dose per injection
     Route: 058
  2. NUTROPIN [Suspect]
     Indication: AZOTAEMIA
  3. NUTROPIN [Suspect]
     Indication: RENAL APLASIA
  4. NUTROPIN [Suspect]
     Indication: CONGENITAL HYPOTHYROIDISM

REACTIONS (2)
  - Death [Fatal]
  - Nasopharyngitis [Unknown]
